FAERS Safety Report 10764944 (Version 3)
Quarter: 2015Q2

REPORT INFORMATION
  Report Type: Spontaneous
  Country: US (occurrence: US)
  Receive Date: 20150205
  Receipt Date: 20150406
  Transmission Date: 20150821
  Serious: No
  Sender: FDA-Public Use
  Company Number: US-PFIZER INC-2015045324

PATIENT
  Age: 61 Year
  Sex: Female

DRUGS (1)
  1. RELPAX [Suspect]
     Active Substance: ELETRIPTAN HYDROBROMIDE
     Indication: MIGRAINE
     Dosage: 40 MG, ONCE A DAY OR EVERY OTHER DAY
     Dates: start: 2007

REACTIONS (2)
  - Dysphonia [Unknown]
  - Hearing impaired [Unknown]
